FAERS Safety Report 7391797-X (Version None)
Quarter: 2011Q2

REPORT INFORMATION
  Report Type: 
  Country: None (occurrence: None)
  Receive Date: 20110404
  Receipt Date: 20110324
  Transmission Date: 20111010
  Serious: Yes (Other)
  Sender: FDA-Public Use
  Company Number: JP-ROCHE-765549

PATIENT
  Sex: Male
  Weight: 65 kg

DRUGS (19)
  1. TOCILIZUMAB [Suspect]
     Dosage: FIFTH DOSE
     Route: 065
     Dates: start: 20101209
  2. TOCILIZUMAB [Suspect]
     Route: 065
     Dates: start: 20110106
  3. TOCILIZUMAB [Suspect]
     Route: 065
     Dates: start: 20101111
  4. PREDNISOLONE [Concomitant]
     Route: 048
  5. TOCILIZUMAB [Suspect]
     Indication: RHEUMATOID ARTHRITIS
     Dosage: TOTAL MONTHLY DOSE: 520 MG
     Route: 065
     Dates: start: 20100819
  6. TEPRENONE [Concomitant]
     Dates: start: 20080521
  7. METHOTREXATE [Concomitant]
     Dosage: FREQUENCY: QS
     Route: 048
     Dates: start: 20051006, end: 20110317
  8. PREDNISOLONE [Concomitant]
     Route: 048
     Dates: start: 20090416
  9. OCRELIZUMAB [Suspect]
     Indication: RHEUMATOID ARTHRITIS
     Dosage: 30APR2009: DAY-15 DOSE, 29SEP2009:DAY-1DOSE, LAST DOSE PRIOR TO SAE: 13 OCT 2009, DAY15
     Route: 042
     Dates: start: 20090416, end: 20100225
  10. FOLIC ACID [Concomitant]
     Dates: start: 20051006, end: 20110317
  11. LOXOPROFEN [Concomitant]
  12. PREDNISOLONE [Concomitant]
     Route: 048
     Dates: start: 20090708
  13. PREDNISOLONE [Concomitant]
     Dosage: DOSE INCREASED.
     Route: 048
     Dates: start: 20080521
  14. TOCILIZUMAB [Suspect]
     Route: 065
     Dates: start: 20110210, end: 20110210
  15. LOXOPROFEN [Concomitant]
     Dosage: DOSE INCREASED.
     Dates: start: 20080521
  16. ISONIAZID [Concomitant]
     Dates: start: 20051214
  17. PREDNISOLONE [Concomitant]
     Route: 048
     Dates: start: 20110311
  18. BLINDED OCRELIZUMAB [Suspect]
     Indication: RHEUMATOID ARTHRITIS
     Dosage: 29MAY2008:DAY15,23OCT2008:WEEK 24,6NOV2008: WEEK26 DOSE ADMINISTERED
     Route: 042
     Dates: start: 20080515, end: 20090416
  19. PREDNISOLONE [Concomitant]
     Dosage: NAME REPORTED AS: PSL
     Route: 048
     Dates: start: 20081224

REACTIONS (1)
  - LYMPHOMA [None]
